FAERS Safety Report 12009900 (Version 1)
Quarter: 2016Q1

REPORT INFORMATION
  Report Type: Report from Study
  Country: US (occurrence: US)
  Receive Date: 20160205
  Receipt Date: 20160205
  Transmission Date: 20160526
  Serious: Yes (Other)
  Sender: FDA-Public Use
  Company Number: PHEH2016US002716

PATIENT
  Age: 62 Year
  Sex: Male

DRUGS (5)
  1. PREDNISONE. [Concomitant]
     Active Substance: PREDNISONE
     Dosage: 15 MG, QD
     Route: 048
     Dates: start: 20160127
  2. IMURAN [Concomitant]
     Active Substance: AZATHIOPRINE
     Dosage: 75 MG, QD
     Dates: start: 20160127
  3. GLEEVEC [Suspect]
     Active Substance: IMATINIB MESYLATE
     Indication: CHRONIC MYELOID LEUKAEMIA
     Dosage: 400 MG, QD
     Route: 048
     Dates: start: 20151222, end: 20160119
  4. IMURAN [Concomitant]
     Active Substance: AZATHIOPRINE
     Indication: LUNG NEOPLASM MALIGNANT
     Dosage: 50 MG, QD
     Route: 048
  5. PREDNISONE. [Concomitant]
     Active Substance: PREDNISONE
     Indication: LUNG NEOPLASM MALIGNANT
     Dosage: 3 MG, QD
     Route: 048

REACTIONS (5)
  - Pulmonary function test abnormal [Unknown]
  - Diarrhoea [Recovered/Resolved]
  - Rash [Recovering/Resolving]
  - Oxygen saturation decreased [Unknown]
  - Nausea [Recovered/Resolved]

NARRATIVE: CASE EVENT DATE: 20160122
